FAERS Safety Report 13585300 (Version 5)
Quarter: 2017Q3

REPORT INFORMATION
  Report Type: Report from Study
  Country: US (occurrence: US)
  Receive Date: 20170526
  Receipt Date: 20170721
  Transmission Date: 20171127
  Serious: Yes (Hospitalization, Other)
  Sender: FDA-Public Use
  Company Number: US-JNJFOC-20170304153

PATIENT
  Age: 73 Year
  Sex: Male

DRUGS (9)
  1. NIFEDIPINE. [Concomitant]
     Active Substance: NIFEDIPINE
  2. IMBRUVICA [Suspect]
     Active Substance: IBRUTINIB
     Indication: CHRONIC LYMPHOCYTIC LEUKAEMIA
     Route: 048
     Dates: start: 20161122
  3. ASA [Concomitant]
     Active Substance: ASPIRIN
  4. ISOPHANE INSULIN [Concomitant]
     Active Substance: INSULIN NOS
  5. IMBRUVICA [Suspect]
     Active Substance: IBRUTINIB
     Indication: CHRONIC LYMPHOCYTIC LEUKAEMIA
     Route: 048
     Dates: start: 20161010
  6. FUROSEMIDE. [Concomitant]
     Active Substance: FUROSEMIDE
  7. RANITIDINE. [Concomitant]
     Active Substance: RANITIDINE
  8. ALLOPURINOL. [Concomitant]
     Active Substance: ALLOPURINOL
  9. METOPROLOL. [Concomitant]
     Active Substance: METOPROLOL

REACTIONS (8)
  - Constipation [Recovered/Resolved]
  - Squamous cell carcinoma of skin [Not Recovered/Not Resolved]
  - Fluid retention [Unknown]
  - Disease progression [Unknown]
  - Stomatitis [Recovered/Resolved]
  - Adverse drug reaction [Unknown]
  - Atrial fibrillation [Unknown]
  - Basal cell carcinoma [Not Recovered/Not Resolved]

NARRATIVE: CASE EVENT DATE: 20170528
